FAERS Safety Report 10429498 (Version 4)
Quarter: 2014Q4

REPORT INFORMATION
  Report Type: Report from Study
  Country: US (occurrence: US)
  Receive Date: 20140904
  Receipt Date: 20141103
  Transmission Date: 20150528
  Serious: Yes (Hospitalization)
  Sender: FDA-Public Use
  Company Number: US-ROCHE-1421003

PATIENT
  Age: 65 Year
  Sex: Male
  Weight: 71.3 kg

DRUGS (19)
  1. BEVACIZUMAB [Suspect]
     Active Substance: BEVACIZUMAB
     Route: 042
     Dates: start: 20141007
  2. DOCUSATE [Concomitant]
     Active Substance: DOCUSATE
     Route: 065
  3. AZOPT [Concomitant]
     Active Substance: BRINZOLAMIDE
     Route: 065
  4. VORINOSTAT [Suspect]
     Active Substance: VORINOSTAT
     Indication: GLIOBLASTOMA
     Dosage: DAYS 1-7 AND 15-21 OF EACH 28-DAY CYCLE
     Route: 048
     Dates: start: 20140604, end: 20140610
  5. BRIMONIDINE [Concomitant]
     Active Substance: BRIMONIDINE\BRIMONIDINE TARTRATE
     Route: 065
  6. RITALIN [Concomitant]
     Active Substance: METHYLPHENIDATE HYDROCHLORIDE
     Route: 065
  7. BEVACIZUMAB [Suspect]
     Active Substance: BEVACIZUMAB
     Indication: GLIOBLASTOMA
     Route: 042
     Dates: start: 20140521, end: 20140604
  8. BEVACIZUMAB [Suspect]
     Active Substance: BEVACIZUMAB
     Route: 042
     Dates: start: 20140728
  9. LEVETIRACETAM. [Concomitant]
     Active Substance: LEVETIRACETAM
     Route: 065
  10. SIMVASTATIN. [Concomitant]
     Active Substance: SIMVASTATIN
     Route: 065
  11. KEPPRA [Concomitant]
     Active Substance: LEVETIRACETAM
     Route: 065
  12. DECADRON [Suspect]
     Active Substance: DEXAMETHASONE
     Route: 048
  13. DECADRON [Suspect]
     Active Substance: DEXAMETHASONE
     Indication: PRODUCT USED FOR UNKNOWN INDICATION
     Route: 048
     Dates: start: 201406
  14. AZELASTINE [Concomitant]
     Active Substance: AZELASTINE
     Route: 045
  15. OLOPATADINE [Concomitant]
     Active Substance: OLOPATADINE
  16. SERTRALINE [Concomitant]
     Active Substance: SERTRALINE HYDROCHLORIDE
     Route: 065
  17. VORINOSTAT [Suspect]
     Active Substance: VORINOSTAT
     Dosage: DAYS 1-7 AND 15-21 OF EACH 28-DAY CYCLE
     Route: 048
     Dates: start: 20140729, end: 20140731
  18. VORINOSTAT [Suspect]
     Active Substance: VORINOSTAT
     Dosage: DAYS 1-7 AND 15-21 OF EACH 28-DAY CYCLE
     Route: 048
     Dates: start: 20141007, end: 20141013
  19. FAMOTIDINE. [Concomitant]
     Active Substance: FAMOTIDINE
     Route: 065

REACTIONS (7)
  - Fatigue [Recovered/Resolved]
  - Muscular weakness [Unknown]
  - Pyrexia [Unknown]
  - Asthenia [Unknown]
  - Confusional state [Unknown]
  - Muscular weakness [Recovered/Resolved]
  - Nausea [Recovered/Resolved]

NARRATIVE: CASE EVENT DATE: 20140615
